FAERS Safety Report 9999480 (Version 1)
Quarter: 2014Q1

REPORT INFORMATION
  Report Type: Spontaneous
  Country: US (occurrence: None)
  Receive Date: 20140311
  Receipt Date: 20140311
  Transmission Date: 20141002
  Serious: Yes (Hospitalization)
  Sender: FDA-Public Use
  Company Number: None

PATIENT
  Age: 55 Year
  Sex: Male
  Weight: 45.9 kg

DRUGS (15)
  1. 5-FLUOROURACIL (5-FU) [Suspect]
  2. BEVACIZUMAB (RHUMAB VEGF) (704865) [Suspect]
  3. IRINOTECAN (CPT-11, CAMPTOSAR) [Suspect]
  4. LEUCOVORIN CALCIUM [Suspect]
  5. GABAPENTIN [Concomitant]
  6. GRANISETRON [Concomitant]
  7. MS CONTIN [Concomitant]
  8. MORPHINE [Concomitant]
  9. PRINCESS MARGARET HOSPITAL MOUTHWASH [Concomitant]
  10. COLACE [Concomitant]
  11. DEXAMETHASONE [Concomitant]
  12. FENTANYL [Concomitant]
  13. LACTULOSE [Concomitant]
  14. PROCHLOROPERAZINE [Concomitant]
  15. SENOKOT [Concomitant]

REACTIONS (1)
  - Performance status decreased [None]
